FAERS Safety Report 10131848 (Version 1)
Quarter: 2014Q2

REPORT INFORMATION
  Report Type: Report from Study
  Country: JP (occurrence: JP)
  Receive Date: 20140428
  Receipt Date: 20140428
  Transmission Date: 20141212
  Serious: Yes (Death, Life-Threatening)
  Sender: FDA-Public Use
  Company Number: JP-ACTELION-A-CH2014-98105

PATIENT
  Age: 72 Year
  Sex: Female
  Weight: 58.7 kg

DRUGS (13)
  1. TRACLEER [Suspect]
     Indication: PULMONARY ARTERIAL HYPERTENSION
     Dosage: 125 MG, BID
     Route: 048
     Dates: start: 20121121, end: 20130331
  2. TRACLEER [Suspect]
     Dosage: 31.25 MG, BID
     Route: 048
     Dates: start: 20111007, end: 20111028
  3. TRACLEER [Suspect]
     Dosage: 62.5 MG, QD
     Route: 048
     Dates: start: 20111029, end: 20120214
  4. TRACLEER [Suspect]
     Dosage: 62.5 MG, BID
     Route: 048
     Dates: start: 20120215, end: 20120517
  5. TRACLEER [Suspect]
     Dosage: 156.25 MG, QD
     Route: 048
     Dates: start: 20120518, end: 20121002
  6. TRACLEER [Suspect]
     Dosage: 93.75 MG, BID
     Route: 048
     Dates: start: 20121003, end: 20121120
  7. BERAPROST SODIUM [Concomitant]
  8. ROSUVASTATIN CALCIUM [Concomitant]
  9. TOCOPHEROL [Concomitant]
  10. MECOBALAMIN [Concomitant]
  11. CILOSTAZOL [Concomitant]
  12. RISEDRONATE SODIUM HYDRATE [Concomitant]
  13. OXYGEN [Concomitant]

REACTIONS (3)
  - Pulmonary hypertension [Fatal]
  - Platelet count decreased [Not Recovered/Not Resolved]
  - Gamma-glutamyltransferase increased [Not Recovered/Not Resolved]
